FAERS Safety Report 17191232 (Version 2)
Quarter: 2020Q1

REPORT INFORMATION
  Report Type: Report from Study
  Country: PE (occurrence: PE)
  Receive Date: 20191223
  Receipt Date: 20200108
  Transmission Date: 20200409
  Serious: Yes (Other)
  Sender: FDA-Public Use
  Company Number: PE-BAYER-2019-196844

PATIENT
  Age: 48 Year
  Sex: Female

DRUGS (4)
  1. BECLOMETHASONE DIPROPIONATE MONOHYDRATE [Suspect]
     Active Substance: BECLOMETHASONE DIPROPIONATE MONOHYDRATE
  2. ESCITALOPRAM [Concomitant]
     Active Substance: ESCITALOPRAM OXALATE
     Indication: DEPRESSION
     Dosage: UNK
  3. BETAFERON [Suspect]
     Active Substance: INTERFERON BETA-1B
     Indication: MULTIPLE SCLEROSIS
     Dosage: 1 ML, QOD
     Dates: start: 20190316, end: 20191025
  4. GABAPENTIN. [Concomitant]
     Active Substance: GABAPENTIN
     Dosage: UNK

REACTIONS (12)
  - Bone pain [Not Recovered/Not Resolved]
  - Asphyxia [Not Recovered/Not Resolved]
  - Erythema [Not Recovered/Not Resolved]
  - Headache [Not Recovered/Not Resolved]
  - Urticaria [Not Recovered/Not Resolved]
  - Pharyngitis [Unknown]
  - Pruritus [Not Recovered/Not Resolved]
  - Joint swelling [Unknown]
  - Feeling hot [Not Recovered/Not Resolved]
  - Productive cough [Unknown]
  - Asphyxia [Not Recovered/Not Resolved]
  - Bronchial obstruction [Not Recovered/Not Resolved]

NARRATIVE: CASE EVENT DATE: 20191125
